FAERS Safety Report 4811486-2 (Version None)
Quarter: 2005Q4

REPORT INFORMATION
  Report Type: 
  Country: None (occurrence: None)
  Receive Date: 20051027
  Receipt Date: 20051026
  Transmission Date: 20060501
  Serious: Yes (Life-Threatening, Hospitalization)
  Sender: FDA-Public Use
  Company Number: PHBS2005ES15699

PATIENT
  Age: 78 Year
  Sex: Male

DRUGS (4)
  1. KALPRESS [Suspect]
     Indication: HYPERTENSION
     Dosage: 160 MG, QD
     Route: 048
  2. RISPERDAL [Suspect]
     Indication: SCHIZOPHRENIFORM DISORDER
     Dosage: 6 MG, QD
     Route: 048
  3. ARTANE [Suspect]
     Indication: HYPERTENSION
     Dosage: 5 MG, QD
     Route: 048
  4. NITRO-DUR [Suspect]
     Dosage: 80 MG, QD
     Route: 062

REACTIONS (1)
  - CEREBROVASCULAR DISORDER [None]
